FAERS Safety Report 19433839 (Version 1)
Quarter: 2021Q2

REPORT INFORMATION
  Report Type: Spontaneous
  Country: US (occurrence: US)
  Receive Date: 20210617
  Receipt Date: 20210617
  Transmission Date: 20210717
  Serious: No
  Sender: FDA-Public Use
  Company Number: US-ROCHE-2604007

PATIENT
  Sex: Female

DRUGS (10)
  1. VITAMIN C [Concomitant]
     Active Substance: ASCORBIC ACID
  2. ACTEMRA [Suspect]
     Active Substance: TOCILIZUMAB
     Indication: RHEUMATOID ARTHRITIS
     Dosage: 400 MG 20 ML SDV?INFUSE 650.9 MG INTRAVENOUSLY AT 8 MG/KG EVERY 4 WEEKS.
     Route: 042
  3. FUROSEMIDE. [Concomitant]
     Active Substance: FUROSEMIDE
  4. MYRBETRIQ [Concomitant]
     Active Substance: MIRABEGRON
  5. PANTOPRAZOLE [Concomitant]
     Active Substance: PANTOPRAZOLE
  6. ESTRADIOL. [Concomitant]
     Active Substance: ESTRADIOL
  7. MAGNESIUM [Concomitant]
     Active Substance: MAGNESIUM
  8. PREDNISONE. [Concomitant]
     Active Substance: PREDNISONE
  9. LEVOTHYROXINE. [Concomitant]
     Active Substance: LEVOTHYROXINE
  10. VITAMIN B COMPLEX [Concomitant]
     Active Substance: CYANOCOBALAMIN\DEXPANTHENOL\NIACINAMIDE\PYRIDOXINE HYDROCHLORIDE\RIBOFLAVIN 5^-PHOSPHATE SODIUM\THIAMINE HYDROCHLORIDE\VITAMIN B COMPLEX

REACTIONS (1)
  - Pruritus [Recovered/Resolved]
